FAERS Safety Report 16197587 (Version 7)
Quarter: 2019Q3

REPORT INFORMATION
  Report Type: Spontaneous
  Country: US (occurrence: US)
  Receive Date: 20190415
  Receipt Date: 20190924
  Transmission Date: 20191004
  Serious: Yes (Hospitalization, Other)
  Sender: FDA-Public Use
  Company Number: US-PFIZER INC-2019160955

PATIENT
  Age: 64 Year
  Sex: Female

DRUGS (1)
  1. IBRANCE [Suspect]
     Active Substance: PALBOCICLIB
     Indication: BREAST CANCER METASTATIC
     Dosage: 75 MG, UNK

REACTIONS (11)
  - Neutrophil count decreased [Unknown]
  - White blood cell count decreased [Unknown]
  - Cognitive disorder [Unknown]
  - Pain [Recovering/Resolving]
  - Gait disturbance [Unknown]
  - Dehydration [Unknown]
  - Product dose omission [Unknown]
  - Nausea [Unknown]
  - Weight decreased [Unknown]
  - Neoplasm progression [Unknown]
  - Malaise [Unknown]

NARRATIVE: CASE EVENT DATE: 201903
